FAERS Safety Report 17285682 (Version 7)
Quarter: 2021Q2

REPORT INFORMATION
  Report Type: Report from Study
  Country: None (occurrence: IE)
  Receive Date: 20200117
  Receipt Date: 20210513
  Transmission Date: 20210716
  Serious: Yes (Life-Threatening, Hospitalization, Other)
  Sender: FDA-Public Use
  Company Number: IE-ABBVIE-19P-229-2905200-00

PATIENT
  Age: 56 Year
  Sex: Female
  Weight: 87 kg

DRUGS (5)
  1. HUMIRA [Suspect]
     Active Substance: ADALIMUMAB
     Indication: COLITIS ULCERATIVE
     Route: 058
     Dates: start: 20130515, end: 20140826
  2. FAMCICLOVIR. [Concomitant]
     Active Substance: FAMCICLOVIR
     Indication: ACUTE MYELOID LEUKAEMIA
     Route: 048
     Dates: start: 20180625
  3. AZATHIOPRINE. [Suspect]
     Active Substance: AZATHIOPRINE
     Indication: COLITIS ULCERATIVE
     Route: 048
     Dates: start: 20001208, end: 20111218
  4. AZATHIOPRINE. [Suspect]
     Active Substance: AZATHIOPRINE
     Route: 048
     Dates: start: 20150226, end: 20150325
  5. AZATHIOPRINE. [Suspect]
     Active Substance: AZATHIOPRINE
     Route: 048
     Dates: start: 20150326, end: 20180609

REACTIONS (3)
  - Respiratory failure [Recovered/Resolved]
  - Acute myeloid leukaemia [Recovered/Resolved]
  - Neutropenic sepsis [Recovered/Resolved]

NARRATIVE: CASE EVENT DATE: 20190117
